FAERS Safety Report 14301514 (Version 1)
Quarter: 2017Q4

REPORT INFORMATION
  Report Type: Spontaneous
  Country: IT (occurrence: IT)
  Receive Date: 20171219
  Receipt Date: 20171219
  Transmission Date: 20180321
  Serious: Yes (Other)
  Sender: FDA-Public Use
  Company Number: IT-CIPLA LTD.-2017IT28037

PATIENT

DRUGS (8)
  1. LANSOPRAZOLO MYLAN GENERICS 15 MG CAPSULE RIGIDE GASTRORESISTENTI [Concomitant]
     Dosage: UNK
     Route: 065
  2. PARACODINA 10,25 MG/ML GOCCE ORALI, SOLUZIONE [Concomitant]
     Dosage: UNK
     Route: 065
  3. LEVOFLOXACIN. [Suspect]
     Active Substance: LEVOFLOXACIN
     Indication: PLEURISY
     Dosage: UNK
     Route: 065
  4. ATORVASTATINA EG [Concomitant]
     Dosage: UNK
     Route: 065
  5. SEVIKAR 20 MG/5 MG COMPRESSE RIVESTITE CON FILM [Concomitant]
     Dosage: UNK
     Route: 065
  6. SOTALOLO MYLAN GENERICS 80 MG COMPRESSE [Concomitant]
     Dosage: UNK
     Route: 065
  7. COUMADIN [Concomitant]
     Active Substance: WARFARIN SODIUM
     Dosage: 5 MG, AS NECESSARY
     Route: 065
  8. ASPIRIN. [Concomitant]
     Active Substance: ASPIRIN
     Dosage: UNK
     Route: 065

REACTIONS (1)
  - Intestinal obstruction [Recovered/Resolved]

NARRATIVE: CASE EVENT DATE: 20171024
